FAERS Safety Report 16569663 (Version 2)
Quarter: 2019Q3

REPORT INFORMATION
  Report Type: Spontaneous
  Country: PL (occurrence: PL)
  Receive Date: 20190715
  Receipt Date: 20190729
  Transmission Date: 20191004
  Serious: Yes (Hospitalization, Other)
  Sender: FDA-Public Use
  Company Number: PL-AUROBINDO-AUR-APL-2019-039929

PATIENT

DRUGS (10)
  1. LAMIVUDINE;ZIDOVUDINE [Suspect]
     Active Substance: LAMIVUDINE\ZIDOVUDINE
     Indication: ANTIRETROVIRAL THERAPY
     Dosage: 150/300 MG, BID
     Route: 065
  2. EMTRICITABINE;TENOFOVIR DISOPROXIL FUMARATE [Suspect]
     Active Substance: EMTRICITABINE\TENOFOVIR DISOPROXIL FUMARATE
     Indication: HIV INFECTION
     Dosage: 200MG/300MG/DAY
     Route: 065
  3. TENOFOVIR DISOPROXIL [Suspect]
     Active Substance: TENOFOVIR DISOPROXIL
     Indication: ANTIRETROVIRAL THERAPY
     Dosage: 300 MILLIGRAM, ONCE A DAY
     Route: 065
  4. TENOFOVIR DISOPROXIL [Suspect]
     Active Substance: TENOFOVIR DISOPROXIL
     Indication: HIV INFECTION
  5. RITONAVIR. [Suspect]
     Active Substance: RITONAVIR
     Indication: ANTIRETROVIRAL THERAPY
     Dosage: 100 MILLIGRAM, ONCE A DAY
     Route: 065
  6. RITONAVIR. [Suspect]
     Active Substance: RITONAVIR
     Indication: HIV INFECTION
  7. DARUNAVIR [Suspect]
     Active Substance: DARUNAVIR
     Indication: ANTIRETROVIRAL THERAPY
     Dosage: 800 MILLIGRAM, ONCE A DAY
     Route: 065
  8. LAMIVUDINE;ZIDOVUDINE [Suspect]
     Active Substance: LAMIVUDINE\ZIDOVUDINE
     Indication: HIV INFECTION
  9. ATAZANAVIR. [Concomitant]
     Active Substance: ATAZANAVIR
     Indication: HIV INFECTION
     Dosage: 300 MILLIGRAM
     Route: 065
  10. DARUNAVIR [Suspect]
     Active Substance: DARUNAVIR
     Indication: HIV INFECTION

REACTIONS (12)
  - Hyperproteinaemia [Recovered/Resolved]
  - Relapsing fever [Recovered/Resolved]
  - Confusional state [Recovered/Resolved]
  - Nervous system disorder [Recovered/Resolved]
  - Psychomotor retardation [Recovered/Resolved]
  - Pathogen resistance [Recovered/Resolved]
  - Pleocytosis [Recovered/Resolved]
  - Encephalitis [Recovered/Resolved]
  - Cranial nerve palsies multiple [Recovered/Resolved]
  - Immune reconstitution inflammatory syndrome [Recovered/Resolved]
  - Headache [Recovered/Resolved]
  - Cerebellar syndrome [Recovered/Resolved]
